FAERS Safety Report 23039123 (Version 2)
Quarter: 2024Q1

REPORT INFORMATION
  Report Type: Spontaneous
  Country: CA (occurrence: CA)
  Receive Date: 20231006
  Receipt Date: 20240105
  Transmission Date: 20240410
  Serious: Yes (Other)
  Sender: FDA-Public Use
  Company Number: CA-SANDOZ-SDZ2023CA038481

PATIENT
  Age: 59 Year
  Sex: Female

DRUGS (1)
  1. ADALIMUMAB [Suspect]
     Active Substance: ADALIMUMAB\ISOPROPYL ALCOHOL
     Indication: Crohn^s disease
     Dosage: 40 MG, QW (1 EVERY 1 WEEKS)
     Route: 058

REACTIONS (3)
  - Post procedural infection [Not Recovered/Not Resolved]
  - Abscess [Not Recovered/Not Resolved]
  - Drug ineffective [Not Recovered/Not Resolved]
